FAERS Safety Report 10269944 (Version 1)
Quarter: 2014Q2

REPORT INFORMATION
  Report Type: Spontaneous
  Country: US (occurrence: None)
  Receive Date: 20140626
  Receipt Date: 20140626
  Transmission Date: 20141212
  Serious: Yes (Other)
  Sender: FDA-Public Use
  Company Number: 2014SA079542

PATIENT
  Age: 25 Year
  Sex: Female

DRUGS (1)
  1. ICY HOT MEDICATED NO MESS APPLICATOR [Suspect]
     Indication: MUSCULOSKELETAL PAIN

REACTIONS (4)
  - Application site pain [None]
  - Application site erythema [None]
  - Application site vesicles [None]
  - Chemical injury [None]
